FAERS Safety Report 19061980 (Version 1)
Quarter: 2021Q1

REPORT INFORMATION
  Report Type: Spontaneous
  Country: US (occurrence: US)
  Receive Date: 20210326
  Receipt Date: 20210326
  Transmission Date: 20210420
  Serious: Yes (Hospitalization)
  Sender: FDA-Public Use
  Company Number: None

PATIENT
  Age: 48 Year
  Sex: Male
  Weight: 95.8 kg

DRUGS (9)
  1. EMLA TOPICAL CREAM [Concomitant]
  2. LOPERAMIDE [Concomitant]
     Active Substance: LOPERAMIDE
  3. MENTHOL?ZINC OXIDE [Concomitant]
  4. GABBAPENTIN [Concomitant]
     Active Substance: GABAPENTIN
  5. MORPHINE [Concomitant]
     Active Substance: MORPHINE
  6. XARELTO [Concomitant]
     Active Substance: RIVAROXABAN
  7. IRINOTECAN [Suspect]
     Active Substance: IRINOTECAN
  8. OXYCODONE [Concomitant]
     Active Substance: OXYCODONE
  9. SENNA [Concomitant]
     Active Substance: SENNA LEAF\SENNOSIDES\SENNOSIDES A AND B

REACTIONS (5)
  - Urinary retention [None]
  - Constipation [None]
  - Diarrhoea [None]
  - Pain [None]
  - Anaphylactic reaction [None]

NARRATIVE: CASE EVENT DATE: 20210303
